FAERS Safety Report 13268127 (Version 1)
Quarter: 2017Q1

REPORT INFORMATION
  Report Type: Spontaneous
  Country: US (occurrence: US)
  Receive Date: 20170222
  Receipt Date: 20170222
  Transmission Date: 20170428
  Serious: No
  Sender: FDA-Public Use
  Company Number: None

PATIENT

DRUGS (1)
  1. AUVI-Q [Suspect]
     Active Substance: EPINEPHRINE

REACTIONS (14)
  - Abdominal pain upper [None]
  - Dyspnoea [None]
  - Oxygen saturation decreased [None]
  - Swelling [None]
  - Fall [None]
  - Seizure [None]
  - Pruritus generalised [None]
  - Hypersensitivity [None]
  - Loss of consciousness [None]
  - Wheezing [None]
  - Pain [None]
  - Erythema [None]
  - Rash generalised [None]
  - Hypotension [None]

NARRATIVE: CASE EVENT DATE: 20150823
